FAERS Safety Report 24443491 (Version 2)
Quarter: 2024Q4

REPORT INFORMATION
  Report Type: Report from Study
  Country: CA (occurrence: CA)
  Receive Date: 20241016
  Receipt Date: 20241017
  Transmission Date: 20250114
  Serious: No
  Sender: ROCHE
  Company Number: CA-ROCHE-2236497

PATIENT
  Age: 55 Year
  Sex: Female
  Weight: 98.0 kg

DRUGS (28)
  1. RITUXAN [Suspect]
     Active Substance: RITUXIMAB
     Indication: Thrombotic thrombocytopenic purpura
     Dosage: DOSE AND FREQUENCY REPORTED AS UNKNOWN?RECEIVED OUTSIDE RPAP
     Route: 042
     Dates: start: 201611, end: 201708
  2. RITUXAN [Suspect]
     Active Substance: RITUXIMAB
     Dosage: (FIRST RPAP INFUSION) RETREATMENT?ON 22/JUN/2018, SHE RECEIVED HER PREVIOUS RITUXIMAB INFUSION.
     Route: 042
     Dates: start: 20171222
  3. RITUXAN [Suspect]
     Active Substance: RITUXIMAB
     Dosage: NEXT DOSE OF RITUXAN INFUSION WAS GIVEN ON: 22/JUN/2018, 21/DEC/2018, 27/JUN/2019, 06/JAN/2020, 09/J
     Route: 042
     Dates: start: 20160801, end: 20170901
  4. RITUXAN [Suspect]
     Active Substance: RITUXIMAB
     Route: 042
  5. RITUXAN [Suspect]
     Active Substance: RITUXIMAB
     Route: 042
  6. RITUXAN [Suspect]
     Active Substance: RITUXIMAB
     Route: 042
  7. ACETAMINOPHEN [Concomitant]
     Active Substance: ACETAMINOPHEN
     Indication: Premedication
     Route: 048
     Dates: start: 20181221
  8. METHYLPREDNISOLONE [Concomitant]
     Active Substance: METHYLPREDNISOLONE
     Indication: Premedication
     Route: 042
     Dates: start: 20181221
  9. BENADRYL [Concomitant]
     Active Substance: DIPHENHYDRAMINE HYDROCHLORIDE
     Indication: Premedication
     Route: 048
     Dates: start: 20181221
  10. RAMIPRIL [Concomitant]
     Active Substance: RAMIPRIL
  11. FERROUS SULFATE [Concomitant]
     Active Substance: FERROUS SULFATE
  12. SYNTHROID [Concomitant]
     Active Substance: LEVOTHYROXINE SODIUM
  13. LEVETIRACETAM [Concomitant]
     Active Substance: LEVETIRACETAM
  14. ROSUVASTATIN [Concomitant]
     Active Substance: ROSUVASTATIN
  15. CITALOPRAM [Concomitant]
     Active Substance: CITALOPRAM
  16. ASPIRIN [Concomitant]
     Active Substance: ASPIRIN
  17. TRIAZIDE [HYDROCHLOROTHIAZIDE;TRIAMTERENE] [Concomitant]
  18. OMEPRAZOLE [Concomitant]
     Active Substance: OMEPRAZOLE
  19. JANUMET [Concomitant]
     Active Substance: METFORMIN HYDROCHLORIDE\SITAGLIPTIN PHOSPHATE
  20. GABAPENTIN [Concomitant]
     Active Substance: GABAPENTIN
  21. INSULIN NOS [Concomitant]
     Active Substance: INSULIN NOS
  22. TOUJEO [Concomitant]
     Active Substance: INSULIN GLARGINE
  23. MAGNESIUM [Concomitant]
     Active Substance: MAGNESIUM
  24. VITAMIN D NOS [Concomitant]
     Active Substance: CHOLECALCIFEROL\ERGOCALCIFEROL
  25. VITAMIN B12 [Concomitant]
     Active Substance: CYANOCOBALAMIN
  26. TYLENOL [Concomitant]
     Active Substance: ACETAMINOPHEN
     Indication: Premedication
     Route: 048
     Dates: start: 20171222
  27. SOLU-MEDROL [Concomitant]
     Active Substance: METHYLPREDNISOLONE SODIUM SUCCINATE
     Indication: Premedication
     Route: 042
     Dates: start: 20171222
  28. ASPIRIN [Concomitant]
     Active Substance: ASPIRIN

REACTIONS (6)
  - Oxygen saturation decreased [Unknown]
  - Blood pressure systolic increased [Unknown]
  - Blood pressure systolic abnormal [Unknown]
  - Blood pressure increased [Unknown]
  - Weight decreased [Recovering/Resolving]
  - Blood pressure fluctuation [Unknown]

NARRATIVE: CASE EVENT DATE: 20190627
